FAERS Safety Report 16949501 (Version 3)
Quarter: 2019Q4

REPORT INFORMATION
  Report Type: Report from Study
  Country: CA (occurrence: CA)
  Receive Date: 20191023
  Receipt Date: 20191108
  Transmission Date: 20200122
  Serious: Yes (Hospitalization)
  Sender: FDA-Public Use
  Company Number: CA-BIOGEN-2019BI00796241

PATIENT
  Age: 28 Year
  Sex: Female

DRUGS (1)
  1. TYSABRI [Suspect]
     Active Substance: NATALIZUMAB
     Indication: MULTIPLE SCLEROSIS
     Dosage: INFUSED OVER ONE HOUR
     Route: 042
     Dates: start: 20191002

REACTIONS (13)
  - Speech disorder [Not Recovered/Not Resolved]
  - Confusional state [Recovered/Resolved]
  - Fatigue [Recovered/Resolved]
  - Nasopharyngitis [Recovered/Resolved]
  - Mental impairment [Not Recovered/Not Resolved]
  - Coordination abnormal [Not Recovered/Not Resolved]
  - Migraine [Not Recovered/Not Resolved]
  - Malaise [Recovered/Resolved]
  - Vertigo [Not Recovered/Not Resolved]
  - Dermatitis acneiform [Recovered/Resolved]
  - Pruritus [Recovered/Resolved]
  - Stress [Recovered/Resolved]
  - Vitamin B12 deficiency [Unknown]

NARRATIVE: CASE EVENT DATE: 201910
